FAERS Safety Report 6554627-1 (Version None)
Quarter: 2010Q1

REPORT INFORMATION
  Report Type: 
  Country: None (occurrence: None)
  Receive Date: 20100127
  Receipt Date: 20100119
  Transmission Date: 20100710
  Serious: Yes (Other)
  Sender: FDA-Public Use
  Company Number: US-PFIZER INC-2009225488

PATIENT
  Sex: Female

DRUGS (13)
  1. GABAPENTIN [Suspect]
     Indication: PAIN
     Dosage: UNK
     Dates: end: 20090401
  2. REBIF [Suspect]
     Indication: MULTIPLE SCLEROSIS
     Dosage: 44 MCG, 3 IN 1 WEEKS
     Route: 058
     Dates: start: 20090123, end: 20090413
  3. CELEXA [Suspect]
     Indication: DEPRESSION
     Dosage: UNK
     Dates: end: 20090401
  4. KLONOPIN [Suspect]
     Indication: SLEEP DISORDER
     Dosage: UNK
     Dates: end: 20090401
  5. KLONOPIN [Suspect]
     Indication: ANXIETY
  6. CYTOXAN [Suspect]
     Indication: MULTIPLE SCLEROSIS
     Dosage: UNK
     Dates: end: 20090401
  7. ACYCLOVIR [Concomitant]
     Indication: MULTIPLE SCLEROSIS
     Dosage: UNK
     Dates: end: 20090401
  8. VITAMIN D [Concomitant]
     Indication: SUPPLEMENTATION THERAPY
     Dosage: UNK
     Dates: end: 20090401
  9. FREE FATTY ACID [Concomitant]
     Indication: SUPPLEMENTATION THERAPY
     Dosage: UNK
     Dates: end: 20090401
  10. SOLU-MEDROL [Concomitant]
     Indication: MULTIPLE SCLEROSIS
     Dosage: 1 G, MONTHLY
     Dates: start: 20090501
  11. SOLU-MEDROL [Concomitant]
     Dosage: 1 G, MONTHLY
     Dates: start: 20090501
  12. MOTRIN [Concomitant]
     Indication: PREMEDICATION
     Dosage: UNK
     Dates: start: 20090101, end: 20090401
  13. TYLENOL [Concomitant]
     Indication: PREMEDICATION
     Dosage: UNK
     Dates: start: 20090101, end: 20090401

REACTIONS (3)
  - AUTOIMMUNE HEPATITIS [None]
  - HEPATITIS [None]
  - HYPOAESTHESIA [None]
